FAERS Safety Report 25947580 (Version 1)
Quarter: 2025Q4

REPORT INFORMATION
  Report Type: Spontaneous
  Country: US (occurrence: None)
  Receive Date: 20251021
  Receipt Date: 20251021
  Transmission Date: 20260117
  Serious: Yes (Hospitalization)
  Sender: FDA-CTU
  Company Number: None

PATIENT
  Sex: Male

DRUGS (11)
  1. LENALIDOMIDE [Suspect]
     Active Substance: LENALIDOMIDE
     Indication: Plasma cell myeloma in remission
     Dosage: FREQUENCY : DAILY;?FREQ: TAKE 1 CAPSULE BY MOUTH DAILY FOR 21 DAYS, OFF 7 DAYS?
     Route: 048
     Dates: start: 20250730, end: 202509
  2. ACETAMIN TAB 325 MG [Concomitant]
  3. ACYCLOVIR [Concomitant]
     Active Substance: ACYCLOVIR
  4. AMLODIPINE [Concomitant]
     Active Substance: AMLODIPINE BESYLATE
  5. ASPIRIN CHW 81MG [Concomitant]
  6. ASPIRIN [Concomitant]
     Active Substance: ASPIRIN
  7. CALCIUM 500 TAB +D [Concomitant]
  8. CARVEDILOL TAB 25MG [Concomitant]
  9. CHLORHEX GLU SOL 0.12% [Concomitant]
  10. NORVASC TAB5MG [Concomitant]
  11. TRAMADOL HCL TAB 50MG [Concomitant]

REACTIONS (4)
  - Therapy cessation [None]
  - Pulmonary embolism [None]
  - Deep vein thrombosis [None]
  - Acute kidney injury [None]
